FAERS Safety Report 10996494 (Version 1)
Quarter: 2015Q2

REPORT INFORMATION
  Report Type: Spontaneous
  Country: TR (occurrence: TR)
  Receive Date: 20150408
  Receipt Date: 20150408
  Transmission Date: 20150821
  Serious: Yes (Death)
  Sender: FDA-Public Use
  Company Number: TR-ROCHE-1553382

PATIENT
  Age: 61 Year
  Sex: Male
  Weight: 67 kg

DRUGS (3)
  1. XELOX [Concomitant]
     Active Substance: CAPECITABINE\OXALIPLATIN
  2. ZEFFIX [Concomitant]
     Active Substance: LAMIVUDINE
     Indication: CHRONIC HEPATITIS B
     Route: 048
     Dates: start: 20150101
  3. XELODA [Suspect]
     Active Substance: CAPECITABINE
     Indication: ADENOCARCINOMA OF COLON
     Dosage: 3 TABLETS IN MORNING, 4 TABLETS IN EVENING
     Route: 048
     Dates: start: 20150226, end: 20150302

REACTIONS (3)
  - Thrombocytopenia [Fatal]
  - Agranulocytosis [Fatal]
  - Febrile neutropenia [Fatal]

NARRATIVE: CASE EVENT DATE: 20150309
